FAERS Safety Report 13817529 (Version 2)
Quarter: 2017Q3

REPORT INFORMATION
  Report Type: Spontaneous
  Country: FR (occurrence: FR)
  Receive Date: 20170731
  Receipt Date: 20170901
  Transmission Date: 20171127
  Serious: Yes (Other)
  Sender: FDA-Public Use
  Company Number: FR-PFIZER INC-2017329449

PATIENT
  Age: 81 Year
  Sex: Male
  Weight: 75 kg

DRUGS (14)
  1. LYRICA [Suspect]
     Active Substance: PREGABALIN
     Dosage: ^TWICE^
  2. PROCORALAN [Suspect]
     Active Substance: IVABRADINE
     Indication: CARDIAC FAILURE
     Dosage: ^TWICE^
  3. LYRICA [Suspect]
     Active Substance: PREGABALIN
     Indication: PAIN
     Dosage: 75 MG, UNK
  4. LYRICA [Suspect]
     Active Substance: PREGABALIN
     Dosage: 50 MG, UNK
  5. ADENURIC [Concomitant]
     Active Substance: FEBUXOSTAT
     Dosage: UNK
  6. FORMAG /07892001/ [Concomitant]
     Indication: SUPPLEMENTATION THERAPY
     Dosage: UNK
  7. LASILIX /00032601/ [Concomitant]
     Active Substance: FUROSEMIDE
     Dosage: UNK
  8. PREVISCAN /00789001/ [Concomitant]
     Active Substance: FLUINDIONE
     Dosage: UNK
  9. KARDEGIC [Concomitant]
     Active Substance: ASPIRIN LYSINE
     Dosage: UNK
  10. INEXIUM /01479302/ [Concomitant]
     Active Substance: ESOMEPRAZOLE MAGNESIUM
     Dosage: UNK
  11. OLIGOBIANE [Concomitant]
     Indication: SUPPLEMENTATION THERAPY
     Dosage: UNK
  12. DIGOXINE [Concomitant]
     Active Substance: DIGOXIN
     Indication: CARDIAC FAILURE
     Dosage: UNK
  13. LEXOMIL [Concomitant]
     Active Substance: BROMAZEPAM
     Dosage: 0.5 DF, UNK
  14. KALEORID [Concomitant]
     Active Substance: POTASSIUM CHLORIDE
     Dosage: 8 DF, DAILY

REACTIONS (2)
  - Dry skin [Not Recovered/Not Resolved]
  - Bradycardia [Unknown]

NARRATIVE: CASE EVENT DATE: 201706
